FAERS Safety Report 9524129 (Version 1)
Quarter: 2013Q1

REPORT INFORMATION
  Report Type: Spontaneous
  Country: US (occurrence: None)
  Receive Date: 20130314
  Receipt Date: 20130314
  Transmission Date: 20140127
  Serious: No
  Sender: FDA-Public Use
  Company Number: 1302USA000083

PATIENT
  Age: 49 Year
  Sex: Male

DRUGS (5)
  1. VICTRELIS (BOCEPREVIR) CAPSULE, 200MG [Suspect]
     Dosage: TAKE 4 ORALLY
     Route: 048
  2. PEGASYS (PEGINTERFERON ALFA-2A) INJECTION [Suspect]
     Dosage: PROCLICK
  3. RIBAPAK (RIBAVIRIN) [Suspect]
     Dosage: 1200/DAY
  4. BENADRYL (DIPHENHYDRAMINE HYDROCHLORIDE) [Concomitant]
  5. IBUPROFEN (IBUPROFEN) [Concomitant]

REACTIONS (5)
  - Red blood cell count decreased [None]
  - Anaemia [None]
  - Dizziness [None]
  - Dysgeusia [None]
  - Rash [None]
